FAERS Safety Report 12012531 (Version 2)
Quarter: 2016Q2

REPORT INFORMATION
  Report Type: Spontaneous
  Country: JP (occurrence: JP)
  Receive Date: 20160205
  Receipt Date: 20160404
  Transmission Date: 20160815
  Serious: Yes (Life-Threatening)
  Sender: FDA-Public Use
  Company Number: JP-ABBVIE-15K-087-1472657-00

PATIENT
  Age: 38 Year
  Sex: Male
  Weight: 57 kg

DRUGS (5)
  1. IMURAN [Suspect]
     Active Substance: AZATHIOPRINE
     Route: 048
     Dates: start: 20130827
  2. HUMIRA [Suspect]
     Active Substance: ADALIMUMAB
     Route: 058
     Dates: start: 20130730, end: 20130730
  3. HUMIRA [Suspect]
     Active Substance: ADALIMUMAB
     Indication: COLITIS ULCERATIVE
     Route: 058
     Dates: start: 20130716, end: 20130716
  4. IMURAN [Suspect]
     Active Substance: AZATHIOPRINE
     Indication: COLITIS ULCERATIVE
     Route: 048
     Dates: start: 20130813
  5. HUMIRA [Suspect]
     Active Substance: ADALIMUMAB
     Route: 058
     Dates: start: 20130813, end: 20150924

REACTIONS (6)
  - Paranasal sinus and nasal cavity malignant neoplasm stage II [Recovering/Resolving]
  - Drug ineffective [Unknown]
  - Epistaxis [Recovering/Resolving]
  - Bone disorder [Unknown]
  - Colitis ulcerative [Unknown]
  - Proctitis [Unknown]

NARRATIVE: CASE EVENT DATE: 201308
